FAERS Safety Report 9840518 (Version 1)
Quarter: 2014Q1

REPORT INFORMATION
  Report Type: Spontaneous
  Country: US (occurrence: US)
  Receive Date: 20140124
  Receipt Date: 20140124
  Transmission Date: 20141002
  Serious: No
  Sender: FDA-Public Use
  Company Number: US-PFIZER INC-2014018739

PATIENT
  Age: 72 Year
  Sex: Male

DRUGS (2)
  1. INLYTA [Suspect]
     Indication: RENAL CANCER
     Dosage: 5 MG, ALTERNATE DAY
     Dates: start: 20120722
  2. INLYTA [Suspect]
     Indication: CARCINOMA IN SITU
     Dosage: 10 MG, ALTERNATE DAY
     Dates: start: 20120722

REACTIONS (2)
  - Diarrhoea [Unknown]
  - Fatigue [Unknown]
